FAERS Safety Report 8132724-7 (Version None)
Quarter: 2012Q1

REPORT INFORMATION
  Report Type: 
  Country: None (occurrence: None)
  Receive Date: 20120213
  Receipt Date: 20120207
  Transmission Date: 20120608
  Serious: Yes (Other)
  Sender: FDA-Public Use
  Company Number: BR-PFIZER INC-2012033031

PATIENT
  Age: 90 Year
  Sex: Female

DRUGS (8)
  1. NORVASC [Concomitant]
  2. PROPAFENONE HCL [Concomitant]
  3. OMEPRAZOLE [Concomitant]
  4. LEVOTHYROXINE SODIUM [Concomitant]
  5. LOSARTAN [Concomitant]
  6. ALPRAZOLAM [Suspect]
     Dosage: 0.5 MG, 1X/DAY
     Route: 048
     Dates: start: 19920207
  7. ANAFRANIL [Concomitant]
  8. XALATAN [Concomitant]
     Dosage: UNK
     Dates: start: 20021230

REACTIONS (2)
  - VISUAL ACUITY REDUCED [None]
  - EXOPHTHALMOS [None]
